FAERS Safety Report 12258752 (Version 1)
Quarter: 2016Q2

REPORT INFORMATION
  Report Type: Spontaneous
  Country: US (occurrence: US)
  Receive Date: 20160412
  Receipt Date: 20160412
  Transmission Date: 20160815
  Serious: No
  Sender: FDA-Public Use
  Company Number: US-SA-2015SA058471

PATIENT
  Sex: Female

DRUGS (1)
  1. ALLEGRA [Suspect]
     Active Substance: FEXOFENADINE HYDROCHLORIDE
     Dosage: TOOK 2 TABS IN 24 HR
     Route: 048
     Dates: start: 20150428

REACTIONS (3)
  - Ear discomfort [Unknown]
  - Extra dose administered [Unknown]
  - Dizziness [Unknown]
